FAERS Safety Report 16678031 (Version 1)
Quarter: 2019Q3

REPORT INFORMATION
  Report Type: Report from Study
  Country: US (occurrence: US)
  Receive Date: 20190807
  Receipt Date: 20190807
  Transmission Date: 20191004
  Serious: Yes (Hospitalization)
  Sender: FDA-Public Use
  Company Number: US-ACTELION-A-NJ2019-193939

PATIENT
  Sex: Female

DRUGS (1)
  1. BOSENTAN TABLET 32 MG PED US [Suspect]
     Active Substance: BOSENTAN
     Indication: PULMONARY ARTERIAL HYPERTENSION
     Dosage: 16 MG, BID
     Route: 048

REACTIONS (7)
  - Nasal congestion [Unknown]
  - Vomiting [Unknown]
  - Hospitalisation [Unknown]
  - Withdrawal syndrome [Unknown]
  - Delirium [Unknown]
  - Drooling [Unknown]
  - Teething [Unknown]
